FAERS Safety Report 5107315-2 (Version None)
Quarter: 2006Q3

REPORT INFORMATION
  Report Type: 
  Country: None (occurrence: None)
  Receive Date: 20060912
  Receipt Date: 20060828
  Transmission Date: 20061208
  Serious: Yes (Hospitalization, Other)
  Sender: FDA-Public Use
  Company Number: HQWYE966006JUN06

PATIENT
  Age: 32 Year
  Sex: Female

DRUGS (5)
  1. EFFEXOR XR [Suspect]
     Dosage: OVERDOSE AMOUNT OF 273, 75 MG CAPSULES
     Route: 048
     Dates: start: 20060501, end: 20060501
  2. ALCOHOL (ETHANOL) [Suspect]
  3. ZYPREXA [Suspect]
     Dosage: TAKEN OCCASIONALLY
     Route: 048
     Dates: end: 20060101
  4. LITHIUM (LITHIUM) [Concomitant]
  5. LEVOTHYROXINE SODIUM [Concomitant]

REACTIONS (25)
  - ABDOMINAL PAIN [None]
  - ALCOHOL USE [None]
  - BLOOD GLUCOSE DECREASED [None]
  - CONFUSIONAL STATE [None]
  - DIARRHOEA [None]
  - DYSPEPSIA [None]
  - FALL [None]
  - GRAND MAL CONVULSION [None]
  - HALLUCINATION, VISUAL [None]
  - HEADACHE [None]
  - INTENTIONAL OVERDOSE [None]
  - LOSS OF CONSCIOUSNESS [None]
  - PALPITATIONS [None]
  - PELVIC PAIN [None]
  - PH URINE INCREASED [None]
  - PREMENSTRUAL SYNDROME [None]
  - PROTEIN TOTAL DECREASED [None]
  - PYREXIA [None]
  - RED BLOOD CELLS CSF POSITIVE [None]
  - RENAL FAILURE ACUTE [None]
  - RHABDOMYOLYSIS [None]
  - STRESS [None]
  - SUICIDE ATTEMPT [None]
  - TACHYCARDIA [None]
  - VERTIGO [None]
